FAERS Safety Report 14300077 (Version 1)
Quarter: 2017Q4

REPORT INFORMATION
  Report Type: Spontaneous
  Country: US (occurrence: US)
  Receive Date: 20171219
  Receipt Date: 20171219
  Transmission Date: 20180321
  Serious: Yes (Hospitalization)
  Sender: FDA-Public Use
  Company Number: US-STRIDES ARCOLAB LIMITED-2017SP014772

PATIENT

DRUGS (2)
  1. PROMETHAZINE HYDROCHLORIDE. [Suspect]
     Active Substance: PROMETHAZINE HYDROCHLORIDE
     Indication: NAUSEA
     Dosage: UNK
  2. HEPARIN [Suspect]
     Active Substance: HEPARIN SODIUM
     Indication: PRODUCT USED FOR UNKNOWN INDICATION
     Dosage: UNK

REACTIONS (8)
  - Abdominal pain [Recovered/Resolved]
  - Dyspnoea exertional [Recovered/Resolved]
  - Pulmonary hypertension [Recovered/Resolved]
  - Pulmonary mass [Recovered/Resolved]
  - Medication error [Unknown]
  - Pulmonary embolism [Unknown]
  - Cough [Recovered/Resolved]
  - Lung disorder [Unknown]
